FAERS Safety Report 4626230-1 (Version None)
Quarter: 2005Q2

REPORT INFORMATION
  Report Type: 
  Country: None (occurrence: None)
  Receive Date: 20050404
  Receipt Date: 20050317
  Transmission Date: 20051028
  Serious: Yes (Hospitalization)
  Sender: FDA-Public Use
  Company Number: DE-BRISTOL-MYERS SQUIBB COMPANY-12902029

PATIENT
  Age: 56 Year
  Sex: Female
  Weight: 77 kg

DRUGS (2)
  1. CARBOPLATIN [Suspect]
     Indication: UTERINE CANCER
     Dosage: DOSE:  AUC6
     Route: 042
     Dates: start: 20040909, end: 20050214
  2. CAELYX [Suspect]
     Indication: UTERINE CANCER
     Route: 042
     Dates: start: 20040909, end: 20050214

REACTIONS (1)
  - BONE MARROW DEPRESSION [None]
